FAERS Safety Report 13957399 (Version 2)
Quarter: 2017Q4

REPORT INFORMATION
  Report Type: Spontaneous
  Country: DE (occurrence: DE)
  Receive Date: 20170911
  Receipt Date: 20171009
  Transmission Date: 20180320
  Serious: No
  Sender: FDA-Public Use
  Company Number: DE-ALEXION-A201709868

PATIENT
  Age: 10 Day
  Sex: Female

DRUGS (4)
  1. STRENSIQ [Suspect]
     Active Substance: ASFOTASE ALFA
     Dosage: 2 MG/KG, ONE DQY
     Dates: start: 20170821
  2. STRENSIQ [Suspect]
     Active Substance: ASFOTASE ALFA
     Dosage: 3 MG/KG, QD
     Route: 065
  3. STRENSIQ [Suspect]
     Active Substance: ASFOTASE ALFA
     Dosage: 3 MG/KG, TIW
     Route: 065
  4. STRENSIQ [Suspect]
     Active Substance: ASFOTASE ALFA
     Indication: HYPOPHOSPHATASIA
     Dosage: UNK
     Route: 058

REACTIONS (1)
  - Atelectasis [Unknown]

NARRATIVE: CASE EVENT DATE: 20170921
